FAERS Safety Report 5355990-X (Version None)
Quarter: 2007Q2

REPORT INFORMATION
  Report Type: 
  Country: None (occurrence: None)
  Receive Date: 20070525
  Receipt Date: 20070131
  Transmission Date: 20071010
  Serious: Yes (Other)
  Sender: FDA-Public Use
  Company Number: WAES 0611USA05069

PATIENT
  Sex: Female

DRUGS (7)
  1. VYTORIN [Suspect]
     Indication: BLOOD CHOLESTEROL INCREASED
     Dosage: 10-20 MG/DAILY/PO
     Route: 048
     Dates: start: 20061024, end: 20061029
  2. VYTORIN [Suspect]
     Indication: HYPERLIPIDAEMIA
     Dosage: 10-20 MG/DAILY/PO
     Route: 048
     Dates: start: 20061024, end: 20061029
  3. COUMADIN [Concomitant]
  4. MAXZIDE [Concomitant]
  5. REMERON [Concomitant]
  6. ATENOLOL [Concomitant]
  7. IRON (UNSPECIFIED) [Concomitant]

REACTIONS (2)
  - ACARODERMATITIS [None]
  - PRURITUS [None]
